FAERS Safety Report 13008585 (Version 1)
Quarter: 2016Q4

REPORT INFORMATION
  Report Type: Spontaneous
  Country: US (occurrence: US)
  Receive Date: 20161208
  Receipt Date: 20161208
  Transmission Date: 20170207
  Serious: No
  Sender: FDA-Public Use
  Company Number: US-PFIZER INC-2016557346

PATIENT
  Age: 43 Year
  Sex: Female
  Weight: 88.9 kg

DRUGS (5)
  1. LYRICA [Suspect]
     Active Substance: PREGABALIN
     Indication: FIBROMYALGIA
     Dosage: 250 MG, 2X/DAY
     Route: 048
     Dates: start: 201312
  2. LYRICA [Suspect]
     Active Substance: PREGABALIN
     Indication: AUTOIMMUNE THYROIDITIS
     Dosage: 250 MG, 1X/DAY (FOR A COUPLE OF WEEKS)
     Route: 048
  3. LYRICA [Suspect]
     Active Substance: PREGABALIN
     Dosage: 50 MG, UNK [ONE EVERY 3 DAYS]
     Route: 048
  4. LYRICA [Suspect]
     Active Substance: PREGABALIN
     Dosage: 175 MG, DAILY [ONE DAILY]
     Route: 048
  5. LYRICA [Suspect]
     Active Substance: PREGABALIN
     Dosage: UNK UNK, ALTERNATE DAY (TOOK EITHER 75MG OR 150MG; ONE EVERY OTHER DAY)
     Route: 048

REACTIONS (11)
  - Intentional product use issue [Unknown]
  - Drug dose omission [Unknown]
  - Withdrawal syndrome [Not Recovered/Not Resolved]
  - Diarrhoea [Unknown]
  - Prescribed overdose [Unknown]
  - Tremor [Unknown]
  - Time perception altered [Unknown]
  - Feeling abnormal [Unknown]
  - Malaise [Unknown]
  - Pain [Recovering/Resolving]
  - Asthenia [Unknown]

NARRATIVE: CASE EVENT DATE: 201312
